FAERS Safety Report 21439634 (Version 2)
Quarter: 2022Q4

REPORT INFORMATION
  Report Type: Spontaneous
  Country: US (occurrence: US)
  Receive Date: 20221011
  Receipt Date: 20221012
  Transmission Date: 20230113
  Serious: Yes (Life-Threatening, Hospitalization, Other)
  Sender: FDA-Public Use
  Company Number: US-GLAXOSMITHKLINE-USCH2022AMR037228

PATIENT
  Sex: Female

DRUGS (2)
  1. GAS-X [Suspect]
     Active Substance: DIMETHICONE
     Indication: Eructation
     Dosage: UNK
     Dates: start: 202201
  2. GAS-X [Suspect]
     Active Substance: DIMETHICONE
     Indication: Pain

REACTIONS (2)
  - Pulmonary embolism [Unknown]
  - Drug ineffective [Unknown]
